FAERS Safety Report 9547340 (Version 3)
Quarter: 2013Q4

REPORT INFORMATION
  Report Type: Report from Study
  Country: IT (occurrence: IT)
  Receive Date: 20130924
  Receipt Date: 20131112
  Transmission Date: 20140711
  Serious: Yes (Life-Threatening, Hospitalization)
  Sender: FDA-Public Use
  Company Number: IT-JNJFOC-20130910899

PATIENT
  Age: 81 Year
  Sex: Male
  Weight: 89 kg

DRUGS (8)
  1. ABIRATERONE ACETATE [Suspect]
     Route: 048
  2. ABIRATERONE ACETATE [Suspect]
     Indication: PROSTATE CANCER METASTATIC
     Route: 048
     Dates: start: 20120406, end: 20130216
  3. PREDNISONE [Suspect]
     Indication: PROSTATE CANCER METASTATIC
     Route: 048
     Dates: start: 20120406, end: 20130216
  4. LHRH AGONIST [Concomitant]
     Indication: HORMONE THERAPY
     Route: 065
     Dates: start: 20011001
  5. METFORMIN [Concomitant]
     Indication: DIABETES MELLITUS
     Route: 065
  6. IRON [Concomitant]
     Indication: ANAEMIA
     Route: 065
  7. EPOETIN ALFA [Concomitant]
     Indication: ANAEMIA
     Route: 065
  8. DELAPRIDE [Concomitant]
     Indication: HYPERTENSION
     Route: 065

REACTIONS (1)
  - Retroperitoneal haemorrhage [Unknown]
